FAERS Safety Report 15775370 (Version 1)
Quarter: 2018Q4

REPORT INFORMATION
  Report Type: Spontaneous
  Country: US (occurrence: US)
  Receive Date: 20181231
  Receipt Date: 20181231
  Transmission Date: 20190205
  Serious: No
  Sender: FDA-Public Use
  Company Number: US-PHARMING-PHAUS2018000844

PATIENT

DRUGS (6)
  1. CETIRI-D [Concomitant]
  2. RUCONEST [Suspect]
     Active Substance: HUMAN C1-ESTERASE INHIBITOR
     Indication: HEREDITARY ANGIOEDEMA
     Dosage: 750 IU, AS NEEDED
     Route: 042
     Dates: start: 20180424
  3. EPINEPHRINE. [Concomitant]
     Active Substance: EPINEPHRINE
  4. CLARITIN [Concomitant]
     Active Substance: LORATADINE
  5. SODIUM CHLORIDE. [Concomitant]
     Active Substance: SODIUM CHLORIDE
  6. STERILE WATER [Concomitant]
     Active Substance: WATER

REACTIONS (2)
  - Off label use [Unknown]
  - Labyrinthitis [Unknown]

NARRATIVE: CASE EVENT DATE: 20180424
